FAERS Safety Report 4313860-X (Version None)
Quarter: 2004Q1

REPORT INFORMATION
  Report Type: 
  Country: None (occurrence: None)
  Receive Date: 20040305
  Receipt Date: 20040225
  Transmission Date: 20041129
  Serious: Yes (Hospitalization)
  Sender: FDA-Public Use
  Company Number: 2004199563FR

PATIENT
  Age: 81 Year
  Sex: Male
  Weight: 60 kg

DRUGS (4)
  1. ALDACTONE [Suspect]
     Indication: CARDIAC DISORDER
     Dosage: 12.5 MG, DAILY, ORAL
     Route: 048
  2. LASIX [Suspect]
     Indication: CARDIAC DISORDER
     Dosage: 20 MG, QD, ORAL
     Route: 048
  3. AMIODARONE HCL [Concomitant]
  4. PLAVIX [Concomitant]

REACTIONS (5)
  - FALL [None]
  - INTRACRANIAL INJURY [None]
  - LOSS OF CONSCIOUSNESS [None]
  - ORTHOSTATIC HYPOTENSION [None]
  - WOUND [None]
